FAERS Safety Report 14145004 (Version 2)
Quarter: 2018Q2

REPORT INFORMATION
  Report Type: Report from Study
  Country: JP (occurrence: JP)
  Receive Date: 20171031
  Receipt Date: 20180530
  Transmission Date: 20180711
  Serious: Yes (Hospitalization, Other)
  Sender: FDA-Public Use
  Company Number: JP-INCYTE CORPORATION-2017IN009170

PATIENT

DRUGS (3)
  1. JAKAVI [Suspect]
     Active Substance: RUXOLITINIB
     Indication: PRIMARY MYELOFIBROSIS
     Dosage: 5 MG, BID
     Route: 048
     Dates: start: 20161008, end: 20170102
  2. PREDONINE [Concomitant]
     Active Substance: PREDNISOLONE
     Indication: PRIMARY MYELOFIBROSIS
     Dosage: 5 MG, UNK
     Route: 048
     Dates: start: 20151021
  3. PREDONINE [Concomitant]
     Active Substance: PREDNISOLONE
     Indication: INTERSTITIAL LUNG DISEASE
     Dosage: 20 MG, UNK
     Route: 048

REACTIONS (3)
  - Interstitial lung disease [Recovered/Resolved]
  - Platelet count decreased [Unknown]
  - Bone marrow failure [Recovered/Resolved]

NARRATIVE: CASE EVENT DATE: 20161017
